FAERS Safety Report 6269531-6 (Version None)
Quarter: 2009Q3

REPORT INFORMATION
  Report Type: 
  Country: None (occurrence: None)
  Receive Date: 20090715
  Receipt Date: 20090616
  Transmission Date: 20100115
  Serious: Yes (Death, Hospitalization)
  Sender: FDA-Public Use
  Company Number: US-TYCO HEALTHCARE/MALLINCKRODT-T200901234

PATIENT
  Age: 35 Year
  Sex: Male

DRUGS (8)
  1. METHADOSE [Suspect]
     Indication: BACK PAIN
     Dosage: UNK
     Dates: start: 20090401
  2. OXYCODONE [Suspect]
     Indication: BACK PAIN
     Dosage: 30 MG, Q 12 HRS
     Dates: start: 20090429
  3. OXYCONTIN [Suspect]
     Indication: BACK PAIN
     Dosage: 80 MG, Q 12 HRS
     Dates: end: 20090401
  4. OXYCONTIN [Suspect]
     Dosage: 40 MG, Q?12
     Dates: start: 20090429, end: 20090501
  5. OXYCONTIN [Suspect]
     Dosage: 80 MG, Q?12
     Dates: start: 20090501
  6. UNKNOWN DRUGS [Suspect]
  7. LEXAPRO [Concomitant]
     Indication: DEPRESSION
     Dosage: 20 MG, OD
  8. ZOLOFT [Concomitant]
     Indication: DEPRESSION
     Dosage: 150 MG, OD

REACTIONS (2)
  - MULTIPLE DRUG OVERDOSE ACCIDENTAL [None]
  - OVERDOSE [None]
